FAERS Safety Report 20823719 (Version 1)
Quarter: 2022Q2

REPORT INFORMATION
  Report Type: Spontaneous
  Country: US (occurrence: US)
  Receive Date: 20220513
  Receipt Date: 20220513
  Transmission Date: 20220721
  Serious: No
  Sender: FDA-Public Use
  Company Number: US-AMGEN-USASP2022082050

PATIENT
  Age: 68 Year
  Sex: Female

DRUGS (3)
  1. OTEZLA [Suspect]
     Active Substance: APREMILAST
     Indication: Psoriasis
     Dosage: UNK, STARTER PACK
     Route: 065
     Dates: start: 20220505
  2. CLONAZEPAM [Concomitant]
     Active Substance: CLONAZEPAM
  3. TIZANIDINE [Concomitant]
     Active Substance: TIZANIDINE
     Dosage: 4 MILLIGRAM

REACTIONS (8)
  - Nightmare [Unknown]
  - Palpitations [Unknown]
  - Feeling jittery [Unknown]
  - Nervousness [Unknown]
  - Stress [Unknown]
  - Nausea [Not Recovered/Not Resolved]
  - Feeling abnormal [Unknown]
  - Off label use [Unknown]

NARRATIVE: CASE EVENT DATE: 20220501
